FAERS Safety Report 15298348 (Version 3)
Quarter: 2018Q3

REPORT INFORMATION
  Report Type: Report from Study
  Country: US (occurrence: US)
  Receive Date: 20180820
  Receipt Date: 20180914
  Transmission Date: 20181010
  Serious: Yes (Hospitalization, Other)
  Sender: FDA-Public Use
  Company Number: US-GILEAD-2018-0356206

PATIENT
  Age: 78 Year
  Sex: Male
  Weight: 76.83 kg

DRUGS (1)
  1. AMBRISENTAN [Suspect]
     Active Substance: AMBRISENTAN
     Indication: PRODUCT USED FOR UNKNOWN INDICATION
     Dosage: 5 MG, UNK
     Route: 065
     Dates: start: 20180718

REACTIONS (6)
  - Fall [Unknown]
  - Fluid overload [Recovered/Resolved]
  - Road traffic accident [Unknown]
  - Unevaluable event [Unknown]
  - Cardiac failure [Unknown]
  - Haematochezia [Unknown]

NARRATIVE: CASE EVENT DATE: 201808
